FAERS Safety Report 6413129 (Version 2)
Quarter: 2013Q1

REPORT INFORMATION
  Report Type: Spontaneous
  Country: GB (occurrence: GB)
  Receive Date: 20070913
  Receipt Date: 20130320
  Transmission Date: 20140127
  Serious: Yes (Disabling, Other)
  Sender: FDA-Public Use
  Company Number: GB-PFIZER INC-2007074446

PATIENT
  Age: 45 Year
  Sex: Female

DRUGS (2)
  1. CHAMPIX [Suspect]
     Dosage: 1 MG, 2X/DAY
     Route: 048
     Dates: start: 20070730, end: 20070817
  2. FLUOXETINE [Interacting]
     Dosage: 20 MG
     Route: 048
     Dates: start: 2000

REACTIONS (2)
  - Drug interaction [Recovered/Resolved]
  - Depression [Unknown]
